FAERS Safety Report 8352974-4 (Version None)
Quarter: 2012Q2

REPORT INFORMATION
  Report Type: 
  Country: None (occurrence: None)
  Receive Date: 20120511
  Receipt Date: 20110512
  Transmission Date: 20120825
  Serious: No
  Sender: FDA-Public Use
  Company Number: US-GLAXOSMITHKLINE-A0927159A

PATIENT
  Age: 76 Year
  Sex: Female

DRUGS (2)
  1. COZAAR [Concomitant]
  2. DYNACIRC CR [Suspect]
     Indication: HYPERTENSION
     Dosage: 10MG TWICE PER DAY
     Route: 048
     Dates: start: 20070101

REACTIONS (1)
  - DRUG EFFECT DECREASED [None]
